FAERS Safety Report 4832884-7 (Version None)
Quarter: 2005Q4

REPORT INFORMATION
  Report Type: 
  Country: None (occurrence: None)
  Receive Date: 20051121
  Receipt Date: 20051019
  Transmission Date: 20060501
  Serious: Yes (Hospitalization)
  Sender: FDA-Public Use
  Company Number: JP-JPN-A20052511

PATIENT
  Age: 27 Year
  Sex: Female

DRUGS (3)
  1. PAXIL [Suspect]
     Dosage: 280MG PER DAY
     Route: 048
  2. LEXOTAN [Concomitant]
     Dosage: 120MG PER DAY
     Route: 048
  3. SULPIRIDE [Concomitant]
     Dosage: 3000MG PER DAY
     Route: 048

REACTIONS (2)
  - DRUG TOXICITY [None]
  - SUICIDE ATTEMPT [None]
